FAERS Safety Report 12439600 (Version 3)
Quarter: 2017Q3

REPORT INFORMATION
  Report Type: Spontaneous
  Country: US (occurrence: US)
  Receive Date: 20160606
  Receipt Date: 20170911
  Transmission Date: 20171127
  Serious: Yes (Other)
  Sender: FDA-Public Use
  Company Number: US-CELGENEUS-USA-2016056971

PATIENT

DRUGS (4)
  1. GEMCITABINE [Suspect]
     Active Substance: GEMCITABINE\GEMCITABINE HYDROCHLORIDE
     Indication: PANCREATIC CARCINOMA
     Dosage: 1000 MILLIGRAM/SQ. METER
     Route: 041
  2. ADI-PEG 20 [Concomitant]
     Active Substance: PEGARGIMINASE
     Dosage: 36 MILLIGRAM
     Route: 030
  3. ABRAXANE [Suspect]
     Active Substance: PACLITAXEL
     Indication: PANCREATIC CARCINOMA
     Dosage: 125 MILLIGRAM/SQ. METER
     Route: 050
  4. ADI-PEG 20 [Concomitant]
     Active Substance: PEGARGIMINASE
     Indication: PANCREATIC CARCINOMA
     Dosage: 18 MILLIGRAM
     Route: 030

REACTIONS (51)
  - Liver function test increased [Unknown]
  - Hyponatraemia [Unknown]
  - Leukopenia [Unknown]
  - Dermatitis acneiform [Unknown]
  - Injection site erythema [Unknown]
  - Aspartate aminotransferase increased [Unknown]
  - Blood phosphorus increased [Unknown]
  - Hypocalcaemia [Unknown]
  - Rash [Unknown]
  - Chills [Unknown]
  - Hypophosphataemia [Unknown]
  - Fatigue [Unknown]
  - Nausea [Unknown]
  - Constipation [Unknown]
  - Vomiting [Unknown]
  - Hypokalaemia [Unknown]
  - Hypertension [Unknown]
  - Febrile neutropenia [Unknown]
  - Alanine aminotransferase increased [Unknown]
  - Neuropathy peripheral [Unknown]
  - Anaemia [Unknown]
  - Oedema peripheral [Unknown]
  - Blood bilirubin increased [Unknown]
  - Cough [Unknown]
  - Peripheral sensory neuropathy [Unknown]
  - Early satiety [Unknown]
  - Diarrhoea [Unknown]
  - Abdominal distension [Unknown]
  - Rash maculo-papular [Unknown]
  - Hyperkalaemia [Unknown]
  - Depression [Unknown]
  - Neutropenia [Unknown]
  - Hypotension [Unknown]
  - International normalised ratio increased [Unknown]
  - Alopecia [Unknown]
  - Abdominal pain [Unknown]
  - Hypoalbuminaemia [Unknown]
  - Ascites [Unknown]
  - Confusional state [Unknown]
  - Lymphocyte count decreased [Unknown]
  - Pyrexia [Unknown]
  - Anxiety [Unknown]
  - Decreased appetite [Unknown]
  - Haematotoxicity [Unknown]
  - Pancreatic carcinoma [Unknown]
  - Thrombocytopenia [Unknown]
  - Dyspnoea [Unknown]
  - Hyperglycaemia [Unknown]
  - Deep vein thrombosis [Unknown]
  - Cellulitis [Unknown]
  - Oedema [Unknown]
